FAERS Safety Report 15350940 (Version 2)
Quarter: 2018Q3

REPORT INFORMATION
  Report Type: Report from Study
  Country: NL (occurrence: NL)
  Receive Date: 20180905
  Receipt Date: 20180907
  Transmission Date: 20181010
  Serious: Yes (Other)
  Sender: FDA-Public Use
  Company Number: NL-TEVA-2018-NL-951471

PATIENT
  Age: 45 Year
  Sex: Female

DRUGS (5)
  1. CHOLECALCIFEROL [Concomitant]
     Active Substance: CHOLECALCIFEROL
     Dosage: 1 ML DAILY;
     Route: 065
  2. FERRO 200MG [Concomitant]
     Dosage: 600 MILLIGRAM DAILY;
  3. COPAXONE [Suspect]
     Active Substance: GLATIRAMER ACETATE
     Indication: MULTIPLE SCLEROSIS
     Route: 058
     Dates: start: 20160811
  4. IBUPROFEN. [Concomitant]
     Active Substance: IBUPROFEN
     Dosage: AS REQUIRED
  5. OMEPRAZOLE 200 MG [Concomitant]

REACTIONS (7)
  - Paralysis [Recovering/Resolving]
  - Fatigue [Unknown]
  - Nervousness [Recovering/Resolving]
  - Head discomfort [Unknown]
  - Palpitations [Recovering/Resolving]
  - Dyspnoea [Unknown]
  - Ear discomfort [Unknown]

NARRATIVE: CASE EVENT DATE: 20180903
